FAERS Safety Report 9417823 (Version 3)
Quarter: 2013Q3

REPORT INFORMATION
  Report Type: Spontaneous
  Country: US (occurrence: US)
  Receive Date: 20130724
  Receipt Date: 20130827
  Transmission Date: 20140515
  Serious: No
  Sender: FDA-Public Use
  Company Number: US-PFIZER INC-2013215594

PATIENT
  Age: 61 Year
  Sex: Male

DRUGS (2)
  1. VIAGRA [Suspect]
     Dosage: 50 MG, UNK
     Route: 048
     Dates: start: 1999
  2. VIAGRA [Suspect]
     Dosage: HALF OF 100 MG TABLET
     Dates: start: 20130715

REACTIONS (2)
  - Drug ineffective [Unknown]
  - Product expiration date issue [Unknown]
